FAERS Safety Report 10483384 (Version 1)
Quarter: 2014Q3

REPORT INFORMATION
  Report Type: Spontaneous
  Country: US (occurrence: None)
  Receive Date: 20140908
  Receipt Date: 20140908
  Transmission Date: 20150326
  Serious: Yes (Other)
  Sender: FDA-Public Use
  Company Number: 393839N

PATIENT
  Age: 70 Year
  Sex: Female
  Weight: 124 kg

DRUGS (17)
  1. HYDROCHLOROTHIAZIDE W/TRIAMTERENE (HYDROCHLOROTHAIZIDE, TRIAMTERENE) [Concomitant]
  2. LISINOPRIL (LISINOPRIL) [Concomitant]
     Active Substance: LISINOPRIL
  3. ASPIRIN (ACETYLSALICYLIC ACID) [Concomitant]
     Active Substance: ASPIRIN
  4. ACETAMINOPHNE (PARACETAMOL) [Concomitant]
  5. CHOLECALCIFEROL (COLECALCIFEROL) [Concomitant]
  6. VICTOZA [Suspect]
     Active Substance: LIRAGLUTIDE
     Indication: TYPE 2 DIABETES MELLITUS
     Route: 058
     Dates: start: 20110818, end: 20131017
  7. GLYBURIDE/METFORMIN (GLIBENCLAMIDE, METFORMIN HYDROCHLORIDE) [Concomitant]
  8. SITAGLIPTIN (SITAGLIPIN) [Concomitant]
  9. OCUVITE (ASCORBIC ACID, RETINOL, TOCOPHEROL) [Concomitant]
  10. RANITIDINE [Concomitant]
     Active Substance: RANITIDINE\RANITIDINE HYDROCHLORIDE
  11. DORZOLAMIDE HCL AND TIMOLOL MALEATE (DORZOLAMIDE HYDROCHLRIDE, TIMOLOL MALEATE) [Concomitant]
  12. NIACIN (NICOTINIC ACID) [Concomitant]
  13. FISH OIL (FISH OIL) [Concomitant]
     Active Substance: FISH OIL
  14. GABAPENTIN (GABAPETIN) [Concomitant]
  15. MIRALAX (MACROGOL) [Concomitant]
  16. AMLODIPINE (AMLODIPINE0 [Concomitant]
  17. ATORVASTATIN (ATORVASTATIN) [Concomitant]
     Active Substance: ATORVASTATIN

REACTIONS (1)
  - Pancreatitis [None]

NARRATIVE: CASE EVENT DATE: 20130802
